FAERS Safety Report 5674998-8 (Version None)
Quarter: 2008Q1

REPORT INFORMATION
  Report Type: 
  Country: None (occurrence: None)
  Receive Date: 20080320
  Receipt Date: 20080318
  Transmission Date: 20080703
  Serious: Yes (Other)
  Sender: FDA-Public Use
  Company Number: US-ASTRAZENECA-2007UW26828

PATIENT
  Age: 57 Year
  Sex: Female
  Weight: 56.7 kg

DRUGS (4)
  1. ARIMIDEX [Suspect]
     Indication: BREAST CANCER
     Route: 048
     Dates: start: 20070813, end: 20071120
  2. ARIMIDEX [Suspect]
     Indication: ILL-DEFINED DISORDER
     Route: 048
     Dates: start: 20070813, end: 20071120
  3. HYZAAR [Concomitant]
  4. SYNTHROID [Concomitant]

REACTIONS (3)
  - ARTHRALGIA [None]
  - TENDONITIS [None]
  - TRIGGER FINGER [None]
